FAERS Safety Report 4516013-5 (Version None)
Quarter: 2004Q4

REPORT INFORMATION
  Report Type: 
  Country: None (occurrence: None)
  Receive Date: 20041129
  Receipt Date: 20041109
  Transmission Date: 20050328
  Serious: Yes (Hospitalization)
  Sender: FDA-Public Use
  Company Number: SHI_00005_2004

PATIENT
  Age: 5 Year
  Sex: Female
  Weight: 17 kg

DRUGS (1)
  1. KEIMAX [Suspect]
     Indication: COUGH
     Dosage: DF PO
     Route: 048
     Dates: start: 20040925, end: 20040928

REACTIONS (8)
  - ABNORMAL BEHAVIOUR [None]
  - ENCEPHALITIS [None]
  - EYE DISORDER [None]
  - EYE PAIN [None]
  - OPTIC NEURITIS [None]
  - PAPILLOEDEMA [None]
  - SOMNOLENCE [None]
  - VISUAL ACUITY REDUCED [None]
